FAERS Safety Report 7795785-0 (Version None)
Quarter: 2011Q4

REPORT INFORMATION
  Report Type: 
  Country: None (occurrence: None)
  Receive Date: 20111004
  Receipt Date: 20111003
  Transmission Date: 20120403
  Serious: Yes (Hospitalization)
  Sender: FDA-Public Use
  Company Number: GB-PFIZER INC-2011221580

PATIENT
  Age: 75 Year
  Sex: Male

DRUGS (7)
  1. ACETYLSALICYLIC ACID [Suspect]
     Indication: PRODUCT USED FOR UNKNOWN INDICATION
     Dosage: 75 MG, 1X/DAY
  2. FUROSEMIDE [Concomitant]
  3. IBUPROFEN [Suspect]
     Indication: PAIN
     Dosage: 400 MG, 6 TIMES A DAY
     Route: 048
     Dates: start: 20110829, end: 20110902
  4. SIMVASTATIN [Concomitant]
  5. TAMSULOSIN [Concomitant]
  6. RAMIPRIL [Concomitant]
  7. FINASTERIDE [Concomitant]

REACTIONS (3)
  - GASTROINTESTINAL HAEMORRHAGE [None]
  - HAEMOGLOBIN DECREASED [None]
  - FAECES DISCOLOURED [None]
